FAERS Safety Report 9197120 (Version 1)
Quarter: 2013Q1

REPORT INFORMATION
  Report Type: Spontaneous
  Country: CA (occurrence: CA)
  Receive Date: 20130328
  Receipt Date: 20130328
  Transmission Date: 20140127
  Serious: Yes (Hospitalization, Other)
  Sender: FDA-Public Use
  Company Number: CA-ROCHE-1206168

PATIENT
  Sex: Female

DRUGS (1)
  1. LUCENTIS [Suspect]
     Indication: AGE-RELATED MACULAR DEGENERATION
     Route: 050
     Dates: start: 200812, end: 201301

REACTIONS (7)
  - Pneumonia [Unknown]
  - Arrhythmia [Unknown]
  - Cardiac failure congestive [Unknown]
  - Eye disorder [Unknown]
  - Arthritis [Unknown]
  - Calcinosis [Unknown]
  - Injection site pain [Unknown]
